FAERS Safety Report 4563990-2 (Version None)
Quarter: 2005Q1

REPORT INFORMATION
  Report Type: 
  Country: None (occurrence: None)
  Receive Date: 20050128
  Receipt Date: 20050117
  Transmission Date: 20050727
  Serious: Yes (Hospitalization)
  Sender: FDA-Public Use
  Company Number: US-JNJFOC-20050104205

PATIENT
  Sex: Male
  Weight: 61.24 kg

DRUGS (2)
  1. ULTRACET [Suspect]
     Indication: BACK PAIN
  2. VIOXX [Concomitant]
     Indication: BACK PAIN

REACTIONS (1)
  - MYOCARDIAL INFARCTION [None]
